FAERS Safety Report 8058555-4 (Version None)
Quarter: 2012Q1

REPORT INFORMATION
  Report Type: 
  Country: None (occurrence: None)
  Receive Date: 20120120
  Receipt Date: 20120113
  Transmission Date: 20120608
  Serious: Yes (Other)
  Sender: FDA-Public Use
  Company Number: JP-PFIZER INC-2011278691

PATIENT
  Age: 64 Year
  Sex: Male

DRUGS (5)
  1. XALATAN [Suspect]
     Indication: GLAUCOMA
     Dosage: 1 GTT, 1X/DAY, IN RIGHT EYE
     Route: 047
     Dates: start: 20071206
  2. COSOPT [Concomitant]
     Dosage: IN LEFT EYE
     Route: 047
     Dates: start: 20111102, end: 20111121
  3. TRUSOPT [Suspect]
     Indication: GLAUCOMA
     Dosage: IN LEFT EYE
     Route: 047
     Dates: start: 20100930, end: 20111017
  4. XALATAN [Suspect]
     Dosage: 1 GTT, 1X/DAY IN LEFT EYE
     Route: 047
     Dates: start: 20111031, end: 20111102
  5. COSOPT [Concomitant]
     Indication: GLAUCOMA
     Dosage: IN LEFT EYE
     Route: 047
     Dates: start: 20111017, end: 20111031

REACTIONS (4)
  - SCLERITIS [None]
  - VISUAL ACUITY REDUCED [None]
  - MACULAR OEDEMA [None]
  - DIABETIC RETINAL OEDEMA [None]
